FAERS Safety Report 6432747-X (Version None)
Quarter: 2009Q4

REPORT INFORMATION
  Report Type: 
  Country: None (occurrence: None)
  Receive Date: 20091109
  Receipt Date: 20091102
  Transmission Date: 20100525
  Serious: Yes (Hospitalization)
  Sender: FDA-Public Use
  Company Number: US-B.I. PHARMACEUTICALS,INC./RIDGEFIELD-2009-BP-10990BP

PATIENT
  Age: 52 Year
  Sex: Male

DRUGS (10)
  1. MOBIC [Suspect]
     Indication: ARTHRITIS
     Dosage: 15 MG
     Route: 048
     Dates: start: 20040901
  2. MOBIC [Suspect]
     Indication: ARTHRALGIA
  3. LISINOPRIL [Concomitant]
     Dosage: 20 MG
  4. ALLOPURINOL [Concomitant]
     Dosage: 300 MG
  5. METOPROLOL TARTRATE [Concomitant]
     Dosage: 100 MG
  6. WARFARIN SODIUM [Concomitant]
     Dosage: 7.5 MG
  7. FUROSEMIDE [Concomitant]
     Dosage: 20 MG
  8. METFORMIN [Concomitant]
     Dosage: 500 MG
  9. GLIPIZIDE [Concomitant]
     Dosage: 5 MG
  10. OXYCOD/APAP [Concomitant]

REACTIONS (5)
  - ARTHRALGIA [None]
  - EXOSTOSIS [None]
  - MUSCLE REATTACHMENT [None]
  - PULMONARY EMBOLISM [None]
  - ROTATOR CUFF REPAIR [None]
